FAERS Safety Report 7000641-1 (Version None)
Quarter: 2010Q3

REPORT INFORMATION
  Report Type: 
  Country: None (occurrence: None)
  Receive Date: 20100902
  Receipt Date: 20100304
  Transmission Date: 20110219
  Serious: Yes (Disabling, Other)
  Sender: FDA-Public Use
  Company Number: 226639USA

PATIENT
  Sex: Female

DRUGS (2)
  1. METOCLOPRAMIDE [Suspect]
     Indication: IMPAIRED GASTRIC EMPTYING
     Dosage: 20-40MG DAILY; 40MG DAILY
     Dates: start: 20011201, end: 20050301
  2. METOCLOPRAMIDE [Suspect]
     Indication: IMPAIRED GASTRIC EMPTYING
     Dosage: 20-40MG DAILY; 40MG DAILY
     Dates: start: 20050301, end: 20080701

REACTIONS (15)
  - DEFORMITY [None]
  - DRUG INEFFECTIVE [None]
  - DYSPHAGIA [None]
  - DYSPNOEA [None]
  - HYPOAESTHESIA [None]
  - MASTICATION DISORDER [None]
  - MOUTH ULCERATION [None]
  - MUSCLE DISORDER [None]
  - MUSCLE SPASMS [None]
  - OROMANDIBULAR DYSTONIA [None]
  - PARAESTHESIA [None]
  - RESPIRATORY DYSKINESIA [None]
  - RESTLESS LEGS SYNDROME [None]
  - SPEECH DISORDER [None]
  - TARDIVE DYSKINESIA [None]
